FAERS Safety Report 23816554 (Version 3)
Quarter: 2024Q2

REPORT INFORMATION
  Report Type: Spontaneous
  Country: US (occurrence: US)
  Receive Date: 20240503
  Receipt Date: 20240617
  Transmission Date: 20240716
  Serious: Yes (Death, Other)
  Sender: FDA-Public Use
  Company Number: US-REGENERON PHARMACEUTICALS, INC.-2024-064162

PATIENT
  Sex: Female

DRUGS (2)
  1. EYLEA [Suspect]
     Active Substance: AFLIBERCEPT
     Indication: Neovascular age-related macular degeneration
     Dosage: 2 MG, Q4W (EVERY 4 WEEKS) IN RIGHT EYE; FORMULATION: GERRESHEIMER
     Dates: end: 202310
  2. EYLEA [Suspect]
     Active Substance: AFLIBERCEPT
     Dosage: 2 MG, Q4W (EVERY 4 WEEKS) IN RIGHT EYE; FORMULATION: GERRESHEIMER
     Dates: start: 20240119, end: 20240119

REACTIONS (2)
  - Colon cancer stage III [Fatal]
  - Illness [Unknown]
